FAERS Safety Report 15699578 (Version 1)
Quarter: 2018Q4

REPORT INFORMATION
  Report Type: Spontaneous
  Country: US (occurrence: US)
  Receive Date: 20181203
  Receipt Date: 20181203
  Transmission Date: 20190205
  Serious: Yes (Life-Threatening)
  Sender: FDA-Public Use
  Company Number: US-C B FLEET CO INC-201811-US-002830

PATIENT
  Sex: Female

DRUGS (1)
  1. CHLORASEPTIC SORE THROAT [Suspect]
     Active Substance: PHENOL
     Indication: OROPHARYNGEAL PAIN
     Dosage: SHE USED 5 SPRAYS AT ONE TIME
     Route: 048
     Dates: start: 20181119, end: 20181119

REACTIONS (5)
  - Urticaria [Recovered/Resolved]
  - Erythema [Recovered/Resolved]
  - Rash [Recovered/Resolved]
  - Wrong technique in product usage process [None]
  - Overdose [None]

NARRATIVE: CASE EVENT DATE: 20181119
